FAERS Safety Report 6115853-9 (Version None)
Quarter: 2009Q1

REPORT INFORMATION
  Report Type: 
  Country: None (occurrence: None)
  Receive Date: 20090311
  Receipt Date: 20090303
  Transmission Date: 20090719
  Serious: Yes (Hospitalization)
  Sender: FDA-Public Use
  Company Number: 2009SP004665

PATIENT
  Age: 64 Year
  Sex: 0
  Weight: 83 kg

DRUGS (9)
  1. TEMOZOLOMIDE [Suspect]
     Indication: GLIOBLASTOMA MULTIFORME
     Dosage: 200 MG/M2; QD; PO
     Route: 048
     Dates: start: 20080807, end: 20080811
  2. BEVACIZUMAB [Suspect]
     Indication: GLIOBLASTOMA MULTIFORME
     Dosage: 10 MG/KG; QOW
     Dates: start: 20080807
  3. BEVACIZUMAB [Suspect]
     Indication: GLIOBLASTOMA MULTIFORME
     Dosage: 10 MG/KG; QOW
     Dates: start: 20080821
  4. KEPPRA [Concomitant]
  5. XANAX [Concomitant]
  6. ZYRTEC [Concomitant]
  7. ATENOLOL [Concomitant]
  8. METFORMIN HCL [Concomitant]
  9. TYLENOL [Concomitant]

REACTIONS (7)
  - COUGH [None]
  - DIZZINESS [None]
  - ERYTHEMA [None]
  - HYPOTENSION [None]
  - MUSCULAR WEAKNESS [None]
  - WHEEZING [None]
  - WOUND DEHISCENCE [None]
